FAERS Safety Report 8431650-3 (Version None)
Quarter: 2012Q2

REPORT INFORMATION
  Report Type: 
  Country: None (occurrence: None)
  Receive Date: 20120613
  Receipt Date: 20120206
  Transmission Date: 20120825
  Serious: No
  Sender: FDA-Public Use
  Company Number: US-GLAXOSMITHKLINE-A0964808A

PATIENT
  Age: 55 Year
  Sex: Female

DRUGS (3)
  1. TREXIMET [Suspect]
     Indication: MIGRAINE
     Dosage: 1TAB AS REQUIRED
     Route: 048
     Dates: start: 20120125
  2. MEDROL [Concomitant]
  3. ACETAMINOPHEN [Concomitant]

REACTIONS (6)
  - ASTHENIA [None]
  - SENSATION OF HEAVINESS [None]
  - CHEST DISCOMFORT [None]
  - ERUCTATION [None]
  - FATIGUE [None]
  - FEELING ABNORMAL [None]
